FAERS Safety Report 8455740-4 (Version None)
Quarter: 2012Q2

REPORT INFORMATION
  Report Type: 
  Country: None (occurrence: None)
  Receive Date: 20120621
  Receipt Date: 20120619
  Transmission Date: 20120825
  Serious: Yes (Other)
  Sender: FDA-Public Use
  Company Number: US-PFIZER INC-2012147946

PATIENT
  Age: 74 Year
  Sex: Female
  Weight: 63.5 kg

DRUGS (3)
  1. METFORMIN [Concomitant]
     Indication: DIABETES MELLITUS
     Dosage: 500 MG, 2X/DAY
  2. CHANTIX [Suspect]
     Indication: SMOKING CESSATION THERAPY
     Dosage: 0.5 MG, DAILY
     Dates: start: 20120501, end: 20120501
  3. CHANTIX [Suspect]
     Dosage: UNK
     Dates: start: 20120501, end: 20120501

REACTIONS (4)
  - HYPERHIDROSIS [None]
  - NAUSEA [None]
  - DYSPNOEA [None]
  - DIARRHOEA [None]
